FAERS Safety Report 17130434 (Version 4)
Quarter: 2021Q3

REPORT INFORMATION
  Report Type: Spontaneous
  Country: US (occurrence: US)
  Receive Date: 20191209
  Receipt Date: 20210907
  Transmission Date: 20211014
  Serious: Yes (Hospitalization, Other)
  Sender: FDA-Public Use
  Company Number: US-PFIZER INC-2019479638

PATIENT
  Age: 40 Year
  Sex: Male
  Weight: 67.12 kg

DRUGS (4)
  1. MS CONTIN [Concomitant]
     Active Substance: MORPHINE SULFATE
     Indication: PAIN
     Dosage: 100 MG, 2X/DAY  (100MG/12 HOURS )
     Route: 048
     Dates: start: 1996, end: 199606
  2. MS CONTIN [Concomitant]
     Active Substance: MORPHINE SULFATE
     Dosage: 100 MG, 4X/DAY
     Route: 048
     Dates: start: 199606, end: 20191001
  3. XANAX [Suspect]
     Active Substance: ALPRAZOLAM
     Indication: GENERALISED ANXIETY DISORDER
  4. XANAX [Suspect]
     Active Substance: ALPRAZOLAM
     Indication: ANXIETY
     Dosage: 1 MG, 3X/DAY
     Route: 048
     Dates: start: 199608, end: 20191001

REACTIONS (24)
  - Substance abuse [Recovered/Resolved]
  - Alopecia [Not Recovered/Not Resolved]
  - Coma [Recovered/Resolved]
  - Mental status changes [Not Recovered/Not Resolved]
  - Dehydration [Recovered/Resolved]
  - Confusional state [Not Recovered/Not Resolved]
  - Agitation [Not Recovered/Not Resolved]
  - Seizure [Not Recovered/Not Resolved]
  - Altered state of consciousness [Unknown]
  - Pneumonia aspiration [Recovered/Resolved]
  - Drug withdrawal syndrome [Not Recovered/Not Resolved]
  - Encephalopathy [Unknown]
  - Brain injury [Not Recovered/Not Resolved]
  - Cerebral disorder [Not Recovered/Not Resolved]
  - Photosensitivity reaction [Not Recovered/Not Resolved]
  - Feeling abnormal [Unknown]
  - Off label use [Unknown]
  - Tremor [Not Recovered/Not Resolved]
  - Hallucination [Recovered/Resolved]
  - Sinus bradycardia [Not Recovered/Not Resolved]
  - Aggression [Recovered/Resolved]
  - Lactic acidosis [Recovered/Resolved]
  - Illness [Not Recovered/Not Resolved]
  - Injury [Unknown]

NARRATIVE: CASE EVENT DATE: 199608
